FAERS Safety Report 14054815 (Version 6)
Quarter: 2018Q4

REPORT INFORMATION
  Report Type: Report from Study
  Country: GB (occurrence: GB)
  Receive Date: 20171006
  Receipt Date: 20181202
  Transmission Date: 20190204
  Serious: Yes (Hospitalization, Other)
  Sender: FDA-Public Use
  Company Number: GB-BRISTOL-MYERS SQUIBB COMPANY-BMS-2017-088177

PATIENT
  Age: 67 Year
  Sex: Female

DRUGS (2)
  1. CODEINE                            /00012602/ [Concomitant]
     Active Substance: CODEINE PHOSPHATE
     Indication: PRODUCT USED FOR UNKNOWN INDICATION
     Route: 065
  2. ABATACEPT [Suspect]
     Active Substance: ABATACEPT
     Indication: RHEUMATOID ARTHRITIS
     Dosage: 125 MG, QWK
     Route: 058
     Dates: start: 20150420

REACTIONS (8)
  - Drug ineffective [Unknown]
  - Intestinal polyp [Unknown]
  - Arthropathy [Unknown]
  - Platelet count decreased [Unknown]
  - Device leakage [Unknown]
  - Joint swelling [Unknown]
  - Infection [Unknown]
  - Tooth disorder [Unknown]

NARRATIVE: CASE EVENT DATE: 2017
